FAERS Safety Report 9014786 (Version 2)
Quarter: 2013Q1

REPORT INFORMATION
  Report Type: Report from Study
  Country: DE (occurrence: DE)
  Receive Date: 20130115
  Receipt Date: 20130326
  Transmission Date: 20140127
  Serious: Yes (Hospitalization, Other)
  Sender: FDA-Public Use
  Company Number: DE-UCBSA-073846

PATIENT
  Age: 66 Year
  Sex: Female
  Weight: 69 kg

DRUGS (17)
  1. NEUPRO [Suspect]
     Indication: PARKINSON^S DISEASE
     Route: 062
     Dates: start: 20110921, end: 20121107
  2. NEUPRO [Suspect]
     Indication: PARKINSON^S DISEASE
     Route: 062
     Dates: start: 20110629, end: 20110920
  3. NEUPRO [Suspect]
     Indication: PARKINSON^S DISEASE
     Route: 062
     Dates: start: 20110316, end: 20110628
  4. NEUPRO [Suspect]
     Indication: PARKINSON^S DISEASE
     Route: 062
     Dates: start: 20101127, end: 20110315
  5. NEUPRO [Suspect]
     Indication: PARKINSON^S DISEASE
     Route: 062
     Dates: start: 20101120, end: 20101126
  6. LEVOCOMP [Suspect]
     Indication: PARKINSON^S DISEASE
     Dosage: SINGLE DOSE-100/25 MG
     Dates: end: 20101025
  7. LEVOCOMP [Suspect]
     Indication: PARKINSON^S DISEASE
     Dosage: SINGLE DOSE-100/25 MG
     Dates: start: 20101026
  8. STALEVO [Suspect]
     Indication: PARKINSON^S DISEASE
     Dosage: SINGLE DOSE-100/25/200 MG
     Dates: start: 20111221
  9. MADOPAR [Suspect]
     Indication: PARKINSON^S DISEASE
     Dates: start: 20101113
  10. PK MERZ [Concomitant]
     Indication: PARKINSON^S DISEASE
     Dates: start: 20101116, end: 20101118
  11. PK MERZ [Concomitant]
     Indication: PARKINSON^S DISEASE
     Dates: start: 20101119
  12. COSOPT [Concomitant]
     Indication: GLAUCOMA
     Dosage: SINGLE DOSE: 20/5MG; FORM: DROPS
     Dates: start: 2006
  13. VIGANTOLETTEN [Concomitant]
     Indication: OSTEOPOROSIS
     Dates: start: 2008
  14. ALENDRON [Concomitant]
     Indication: OSTEOPOROSIS
     Dates: start: 2008
  15. CALCIUM D3 [Concomitant]
     Indication: OSTEOPOROSIS
     Dates: start: 2012
  16. TARDYFERON [Concomitant]
     Indication: IRON DEFICIENCY
     Dates: start: 201203
  17. TAMOXIFEN [Concomitant]
     Indication: BREAST CANCER
     Dates: start: 20120321

REACTIONS (1)
  - Psychotic disorder [Recovered/Resolved]
